FAERS Safety Report 7274740-3 (Version None)
Quarter: 2011Q1

REPORT INFORMATION
  Report Type: 
  Country: None (occurrence: None)
  Receive Date: 20110204
  Receipt Date: 20110127
  Transmission Date: 20110831
  Serious: Yes (Life-Threatening)
  Sender: FDA-Public Use
  Company Number: US-SHIONOGI USA, INC-2010000096

PATIENT
  Age: 19 Year
  Sex: Male
  Weight: 181.41 kg

DRUGS (1)
  1. ADRENACLICK [Suspect]
     Indication: ANAPHYLACTIC REACTION
     Dosage: 0.3 MG, PRN
     Route: 058
     Dates: start: 20100725, end: 20100725

REACTIONS (3)
  - PRODUCT QUALITY ISSUE [None]
  - WRONG TECHNIQUE IN DRUG USAGE PROCESS [None]
  - DRUG INEFFECTIVE [None]
